FAERS Safety Report 4983172-X (Version None)
Quarter: 2006Q2

REPORT INFORMATION
  Report Type: 
  Country: None (occurrence: None)
  Receive Date: 20060426
  Receipt Date: 20060117
  Transmission Date: 20061013
  Serious: Yes (Hospitalization)
  Sender: FDA-Public Use
  Company Number: US-KINGPHARMUSA00001-K200600037

PATIENT
  Age: 79 Year
  Sex: Female

DRUGS (4)
  1. ALTACE [Suspect]
     Indication: HYPERTENSION
     Dosage: 2.5 MG, QD
     Route: 048
     Dates: start: 19940701
  2. LASILIX [Suspect]
     Indication: HYPERTENSION
     Dosage: 20 MG, QD
     Route: 048
     Dates: start: 19940701
  3. GARDENAL ^AVENTIS^ [Suspect]
     Dosage: 150 MG, QD
     Route: 048
  4. ELISOR [Concomitant]
     Dosage: 20 MG, UNK
     Route: 048
     Dates: start: 19940701, end: 20050923

REACTIONS (10)
  - ANTINUCLEAR ANTIBODY POSITIVE [None]
  - BLOOD CREATINE PHOSPHOKINASE INCREASED [None]
  - DERMATOMYOSITIS [None]
  - ECZEMA [None]
  - MIXED CONNECTIVE TISSUE DISEASE [None]
  - PHOTOSENSITIVITY REACTION [None]
  - PSORIASIS [None]
  - SCLERODERMA [None]
  - TELANGIECTASIA [None]
  - WEIGHT DECREASED [None]
